FAERS Safety Report 10111145 (Version 1)
Quarter: 2014Q2

REPORT INFORMATION
  Report Type: Spontaneous
  Country: US (occurrence: US)
  Receive Date: 20140425
  Receipt Date: 20140425
  Transmission Date: 20141212
  Serious: No
  Sender: FDA-Public Use
  Company Number: US-009507513-1404USA012417

PATIENT
  Age: 28 Year
  Sex: Female

DRUGS (2)
  1. NUVARING [Suspect]
     Dosage: ETONOGESTREL/ETHINYL ESTRADIOL VAGINAL RING
     Route: 067
     Dates: start: 201404
  2. NUVARING [Suspect]
     Dosage: ETONOGESTREL/ETHINYL ESTRADIOL VAGINAL RING
     Route: 067
     Dates: start: 20130722

REACTIONS (3)
  - Device expulsion [Unknown]
  - Inappropriate schedule of drug administration [Unknown]
  - No adverse event [Unknown]
